FAERS Safety Report 10536952 (Version 3)
Quarter: 2015Q4

REPORT INFORMATION
  Report Type: Spontaneous
  Country: US (occurrence: US)
  Receive Date: 20141022
  Receipt Date: 20151014
  Transmission Date: 20160304
  Serious: No
  Sender: FDA-Public Use
  Company Number: US-RECKITT BENCKISER PHARMACEUTICAL, INC-RB-70685-2014

PATIENT
  Age: 61 Year
  Sex: Female

DRUGS (1)
  1. SUBOXONE [Suspect]
     Active Substance: BUPRENORPHINE HYDROCHLORIDE\NALOXONE HYDROCHLORIDE
     Indication: PAIN
     Dosage: UNK
     Route: 060
     Dates: end: 201410

REACTIONS (3)
  - Dental caries [Not Recovered/Not Resolved]
  - Off label use [Recovered/Resolved]
  - Oral administration complication [Not Recovered/Not Resolved]
